FAERS Safety Report 9723155 (Version 3)
Quarter: 2014Q1

REPORT INFORMATION
  Report Type: Spontaneous
  Country: US (occurrence: US)
  Receive Date: 20131202
  Receipt Date: 20140310
  Transmission Date: 20141002
  Serious: Yes (Hospitalization)
  Sender: FDA-Public Use
  Company Number: US-PFIZER INC-2013339163

PATIENT
  Age: 72 Year
  Sex: Female

DRUGS (1)
  1. BOSULIF [Suspect]
     Indication: CHRONIC MYELOID LEUKAEMIA
     Dosage: 500 MG, 1X/DAY
     Dates: start: 20131122

REACTIONS (3)
  - Pneumonia [Unknown]
  - Diarrhoea [Recovering/Resolving]
  - Muscle spasms [Recovering/Resolving]
